FAERS Safety Report 16252022 (Version 1)
Quarter: 2019Q2

REPORT INFORMATION
  Report Type: Spontaneous
  Country: US (occurrence: US)
  Receive Date: 20190429
  Receipt Date: 20190429
  Transmission Date: 20190711
  Serious: No
  Sender: FDA-Public Use
  Company Number: US-TEVA-2019-US-1041721

PATIENT
  Age: 10 Year
  Sex: Female
  Weight: 51 kg

DRUGS (5)
  1. BACTRIM [Suspect]
     Active Substance: SULFAMETHOXAZOLE\TRIMETHOPRIM
     Route: 065
  2. LIDOCAINE AND PRILOCAINE CREAM [Suspect]
     Active Substance: LIDOCAINE\PRILOCAINE
     Dates: start: 20190412
  3. LIDOCAINE AND PRILOCAINE CREAM [Suspect]
     Active Substance: LIDOCAINE\PRILOCAINE
     Indication: ANALGESIC THERAPY
     Dosage: LIDOCAINE: 2.5%; PRILOCAINE: 2.5% (5 GM)
     Route: 065
     Dates: start: 20190412
  4. TYLENOL [Suspect]
     Active Substance: ACETAMINOPHEN
     Route: 065
  5. LIDOCAINE AND PRILOCAINE CREAM [Suspect]
     Active Substance: LIDOCAINE\PRILOCAINE
     Dates: start: 20190412

REACTIONS (5)
  - Blood disorder [Recovered/Resolved]
  - Methaemoglobinaemia [Recovered/Resolved]
  - Emotional disorder [Recovered/Resolved]
  - Heart rate irregular [Recovered/Resolved]
  - Hallucination [Recovered/Resolved]
